FAERS Safety Report 6887361-9 (Version None)
Quarter: 2010Q3

REPORT INFORMATION
  Report Type: 
  Country: None (occurrence: None)
  Receive Date: 20100730
  Receipt Date: 20091119
  Transmission Date: 20110219
  Serious: No
  Sender: FDA-Public Use
  Company Number: A0812581A

PATIENT
  Age: 48 Year
  Sex: Female

DRUGS (4)
  1. SUMATRIPTAN SUCCINATE [Suspect]
     Dosage: 50MG AS REQUIRED
     Route: 048
     Dates: start: 20090701, end: 20090101
  2. YAZ [Concomitant]
  3. ZOCOR [Concomitant]
  4. CYMBALTA [Concomitant]

REACTIONS (1)
  - DRUG INEFFECTIVE [None]
